FAERS Safety Report 7371020-2 (Version None)
Quarter: 2011Q1

REPORT INFORMATION
  Report Type: 
  Country: None (occurrence: None)
  Receive Date: 20110321
  Receipt Date: 20110321
  Transmission Date: 20110831
  Serious: Yes (Other)
  Sender: FDA-Public Use
  Company Number: None

PATIENT
  Age: 54 Year
  Sex: Female
  Weight: 65.318 kg

DRUGS (1)
  1. BONIVA [Suspect]
     Indication: OSTEOPOROSIS
     Dosage: 1 TABLET 1/MONTH PO
     Route: 048
     Dates: start: 20110315, end: 20110315

REACTIONS (6)
  - DECREASED APPETITE [None]
  - HYPERHIDROSIS [None]
  - DYSPEPSIA [None]
  - CHILLS [None]
  - NAUSEA [None]
  - VOMITING PROJECTILE [None]
